FAERS Safety Report 15364671 (Version 1)
Quarter: 2018Q4

REPORT INFORMATION
  Report Type: Spontaneous
  Country: IN (occurrence: IN)
  Receive Date: 20180910
  Receipt Date: 20180910
  Transmission Date: 20190204
  Serious: No
  Sender: FDA-Public Use
  Company Number: IN-LUPIN LIMITED-2018-04437

PATIENT
  Age: 21 Year
  Sex: Male

DRUGS (5)
  1. Z-1 FILM C. TABLS 500 MG (AZITHROMYCIN) [Suspect]
     Active Substance: AZITHROMYCIN
     Indication: SNEEZING
  2. Z-1 FILM C. TABLS 500 MG (AZITHROMYCIN) [Suspect]
     Active Substance: AZITHROMYCIN
     Indication: NASOPHARYNGITIS
     Dosage: 1 DF, QD
     Route: 048
     Dates: end: 20180608
  3. Z-1 FILM C. TABLS 500 MG (AZITHROMYCIN) [Suspect]
     Active Substance: AZITHROMYCIN
     Indication: PYREXIA
  4. Z-1 FILM C. TABLS 500 MG (AZITHROMYCIN) [Suspect]
     Active Substance: AZITHROMYCIN
     Indication: CHEST PAIN
  5. PYRIGESIC [Concomitant]
     Indication: PRODUCT USED FOR UNKNOWN INDICATION
     Dosage: UNK, TID
     Route: 048
     Dates: start: 20180606

REACTIONS (2)
  - Product physical issue [Unknown]
  - No adverse event [Unknown]

NARRATIVE: CASE EVENT DATE: 20180606
